FAERS Safety Report 5526278-9 (Version None)
Quarter: 2007Q4

REPORT INFORMATION
  Report Type: 
  Country: None (occurrence: None)
  Receive Date: 20071127
  Receipt Date: 20071122
  Transmission Date: 20080405
  Serious: Yes (Hospitalization)
  Sender: FDA-Public Use
  Company Number: GB-BAYER-200710180BNE

PATIENT
  Age: 43 Year
  Sex: Female
  Weight: 95 kg

DRUGS (7)
  1. SORAFENIB [Suspect]
     Indication: RENAL CELL CARCINOMA STAGE UNSPECIFIED
     Dosage: UNIT DOSE: 400 MG
     Route: 048
     Dates: start: 20060712, end: 20070209
  2. SORAFENIB [Suspect]
     Dates: start: 20070216, end: 20070216
  3. SORAFENIB [Suspect]
     Dosage: UNIT DOSE: 400 MG
     Dates: start: 20070323
  4. SORAFENIB [Suspect]
     Dates: start: 20070223, end: 20070308
  5. ATENOLOL [Concomitant]
     Indication: HYPERTENSION
  6. AMLODIPINE [Concomitant]
     Indication: HYPERTENSION
  7. LISINOPRIL [Concomitant]

REACTIONS (3)
  - ANGINA PECTORIS [None]
  - ARTERIOSPASM CORONARY [None]
  - CHEST PAIN [None]
